FAERS Safety Report 5886444-X (Version None)
Quarter: 2008Q3

REPORT INFORMATION
  Report Type: 
  Country: None (occurrence: None)
  Receive Date: 20080917
  Receipt Date: 20080908
  Transmission Date: 20090109
  Serious: Yes (Other)
  Sender: FDA-Public Use
  Company Number: US-JNJFOC-20080902911

PATIENT
  Sex: Female

DRUGS (2)
  1. ORTHO-NOVUM 1/50 21 [Suspect]
     Indication: MENSTRUAL DISORDER
     Route: 065
  2. ORTHO-NOVUM 1/35 [Suspect]
     Indication: DRUG USE FOR UNKNOWN INDICATION
     Route: 065

REACTIONS (3)
  - HYSTERECTOMY [None]
  - NAUSEA [None]
  - STATUS MIGRAINOSUS [None]
